FAERS Safety Report 7943717-4 (Version None)
Quarter: 2011Q4

REPORT INFORMATION
  Report Type: 
  Country: None (occurrence: None)
  Receive Date: 20111128
  Receipt Date: 20111114
  Transmission Date: 20120403
  Serious: Yes (Hospitalization)
  Sender: FDA-Public Use
  Company Number: AU-MYLANLABS-2011S1023807

PATIENT
  Age: 58 Year
  Sex: Female

DRUGS (2)
  1. TEMAZEPAM [Suspect]
     Indication: SLEEP DISORDER
     Dosage: 10-20 MG/DAY
     Route: 065
  2. MIRTAZAPINE [Concomitant]
     Indication: MAJOR DEPRESSION
     Dosage: 45 MG/DAY
     Route: 065

REACTIONS (2)
  - ACUTE PSYCHOSIS [None]
  - WITHDRAWAL SYNDROME [None]
